FAERS Safety Report 23581793 (Version 1)
Quarter: 2024Q1

REPORT INFORMATION
  Report Type: Spontaneous
  Country: AT (occurrence: AT)
  Receive Date: 20240229
  Receipt Date: 20240229
  Transmission Date: 20240410
  Serious: Yes (Hospitalization, Other)
  Sender: FDA-Public Use
  Company Number: AT-009507513-2402AUT009218

PATIENT
  Age: 62 Year
  Sex: Female

DRUGS (3)
  1. PEMBROLIZUMAB [Suspect]
     Active Substance: PEMBROLIZUMAB
     Indication: Breast cancer
     Dosage: 4 CYCLES
     Dates: start: 20220822, end: 20221031
  2. PACLITAXEL [Suspect]
     Active Substance: PACLITAXEL
     Dosage: 10 TIMES, WEEKLY
     Dates: start: 2022, end: 2022
  3. CARBOPLATIN [Suspect]
     Active Substance: CARBOPLATIN
     Dosage: 11 TIMES, WEEKLY
     Dates: start: 2022, end: 2022

REACTIONS (7)
  - Ascending flaccid paralysis [Recovering/Resolving]
  - Peripheral sensory neuropathy [Recovering/Resolving]
  - Neuromyopathy [Recovering/Resolving]
  - Unevaluable event [Unknown]
  - Sleep disorder [Unknown]
  - Secondary adrenocortical insufficiency [Unknown]
  - Hypophysitis [Unknown]

NARRATIVE: CASE EVENT DATE: 20220101
